FAERS Safety Report 9856483 (Version 2)
Quarter: 2014Q2

REPORT INFORMATION
  Report Type: Spontaneous
  Country: SE (occurrence: SE)
  Receive Date: 20140130
  Receipt Date: 20140529
  Transmission Date: 20141212
  Serious: Yes (Disabling)
  Sender: FDA-Public Use
  Company Number: SE-B.I. PHARMACEUTICALS,INC./RIDGEFIELD-2014-BI-03160SW

PATIENT
  Age: 77 Year
  Sex: Female

DRUGS (4)
  1. PRADAXA [Suspect]
     Indication: ATRIAL FIBRILLATION
     Dosage: 300 MG
     Route: 048
     Dates: start: 20111208
  2. ATENOLOL [Concomitant]
     Route: 065
  3. ENALAPRIL [Concomitant]
     Route: 065
  4. TAMBOCOR [Concomitant]
     Route: 065

REACTIONS (1)
  - Osteoporosis [Not Recovered/Not Resolved]
